FAERS Safety Report 6208710-0 (Version None)
Quarter: 2009Q2

REPORT INFORMATION
  Report Type: 
  Country: None (occurrence: None)
  Receive Date: 20090522
  Receipt Date: 20090203
  Transmission Date: 20091009
  Serious: No
  Sender: FDA-Public Use
  Company Number: 8042310

PATIENT
  Age: 43 Year
  Sex: Female
  Weight: 95.2 kg

DRUGS (4)
  1. CIMZIA [Suspect]
     Indication: CROHN'S DISEASE
     Dosage: 400 MG SC
     Route: 058
     Dates: start: 20081212
  2. HYDROCODONE BITARTRATE [Concomitant]
  3. MULTI-VITAMIN [Concomitant]
  4. NEXIUM [Concomitant]

REACTIONS (3)
  - ABDOMINAL PAIN [None]
  - INJECTION SITE REACTION [None]
  - NAUSEA [None]
